FAERS Safety Report 7560607-X (Version None)
Quarter: 2011Q2

REPORT INFORMATION
  Report Type: 
  Country: None (occurrence: None)
  Receive Date: 20110621
  Receipt Date: 20110317
  Transmission Date: 20111010
  Serious: No
  Sender: FDA-Public Use
  Company Number: US-ASTRAZENECA-2011SE15201

PATIENT
  Age: 87 Year
  Sex: Female
  Weight: 58.1 kg

DRUGS (7)
  1. KLOR-CON [Concomitant]
  2. TERAZOSIN HCL [Concomitant]
  3. ENTOCORT EC [Suspect]
     Route: 048
  4. PRILOSEC [Concomitant]
  5. PLAVIX [Concomitant]
  6. LASIX [Concomitant]
  7. ENTOCORT EC [Suspect]
     Route: 048

REACTIONS (4)
  - JOINT SWELLING [None]
  - INCREASED TENDENCY TO BRUISE [None]
  - TENDONITIS [None]
  - BONE PAIN [None]
